FAERS Safety Report 6992943-X (Version None)
Quarter: 2010Q3

REPORT INFORMATION
  Report Type: 
  Country: None (occurrence: None)
  Receive Date: 20100917
  Receipt Date: 20100816
  Transmission Date: 20110219
  Serious: Yes (Hospitalization)
  Sender: FDA-Public Use
  Company Number: AU-SANOFI-AVENTIS-2010SA048811

PATIENT
  Sex: Male

DRUGS (4)
  1. SOLOSTAR [Suspect]
  2. APIDRA SOLOSTAR [Suspect]
     Route: 058
  3. SOLOSTAR [Suspect]
  4. LANTUS [Suspect]
     Route: 058

REACTIONS (3)
  - CONVULSION [None]
  - HYPOGLYCAEMIC SEIZURE [None]
  - WRONG DRUG ADMINISTERED [None]
